FAERS Safety Report 8318719 (Version 3)
Quarter: 2013Q1

REPORT INFORMATION
  Report Type: Spontaneous
  Country: US (occurrence: US)
  Receive Date: 20120103
  Receipt Date: 20130221
  Transmission Date: 20140127
  Serious: Yes (Life-Threatening, Congenital Anomaly, Other)
  Sender: FDA-Public Use
  Company Number: US-PFIZER INC-2011289529

PATIENT
  Sex: Female
  Weight: 2 kg

DRUGS (18)
  1. ZOLOFT [Suspect]
     Indication: DEPRESSION
     Dosage: UNK
     Route: 064
     Dates: start: 20090209, end: 2010
  2. LEXAPRO [Concomitant]
     Indication: DEPRESSION
     Dosage: 20 MG, UNK
     Route: 064
     Dates: start: 20090603
  3. PRENATAL VITAMINS [Concomitant]
     Dosage: UNK
     Route: 064
  4. AZITHROMYCIN [Concomitant]
     Dosage: UNK
     Route: 064
  5. CLARITHROMYCIN [Concomitant]
     Dosage: UNK
     Route: 064
  6. FLUTICASONE [Concomitant]
     Dosage: UNK
     Route: 064
  7. CHERATUSSIN AC [Concomitant]
     Dosage: UNK
     Route: 064
  8. IBUPROFEN [Concomitant]
     Dosage: UNK
     Route: 064
  9. PHENAZOPYRIDINE [Concomitant]
     Dosage: UNK
     Route: 064
  10. PRO-AIR [Concomitant]
     Dosage: UNK
     Route: 064
  11. ONDANSETRON [Concomitant]
     Dosage: UNK
     Route: 064
  12. NIFEDIPINE [Concomitant]
     Dosage: UNK
     Route: 064
  13. SULFAMETHOXAZOLE W/TRIMETHOPRIM [Concomitant]
     Dosage: UNK
     Route: 064
  14. METOCLOPRAMIDE [Concomitant]
     Dosage: UNK
     Route: 064
  15. ACETAMINOPHEN [Concomitant]
     Dosage: UNK
     Route: 064
  16. CIPROFLOXACIN [Concomitant]
     Dosage: UNK
     Route: 064
  17. NAPROXEN [Concomitant]
     Dosage: UNK
     Route: 064
  18. AMOXICILLIN [Concomitant]
     Dosage: UNK
     Route: 064

REACTIONS (7)
  - Maternal exposure timing unspecified [Unknown]
  - Cardiac valve disease [Unknown]
  - Congenital anomaly [Unknown]
  - Cardiac murmur [Unknown]
  - Patent ductus arteriosus [Unknown]
  - Pulmonary artery stenosis congenital [Unknown]
  - Atrial septal defect [Unknown]
